FAERS Safety Report 8496184-9 (Version None)
Quarter: 2012Q3

REPORT INFORMATION
  Report Type: 
  Country: None (occurrence: None)
  Receive Date: 20120709
  Receipt Date: 20120705
  Transmission Date: 20120928
  Serious: Yes (Other)
  Sender: FDA-Public Use
  Company Number: PHHY2012US057796

PATIENT
  Age: 68 Year
  Sex: Female
  Weight: 84 kg

DRUGS (23)
  1. WELLBUTRIN [Suspect]
     Indication: DEPRESSION
  2. LISINOPRIL [Concomitant]
  3. FOSAMAX [Concomitant]
  4. CYMBALTA [Suspect]
     Indication: DEPRESSION
  5. TRIAMTERENE AND HYDROCHLOROTHIAZID [Concomitant]
  6. LIPITOR [Concomitant]
  7. GABITRIL [Concomitant]
  8. SUCCINYLCHOLINE CHLORIDE [Concomitant]
     Dosage: 120 MG, UNK
  9. PAXIL [Suspect]
     Indication: DEPRESSION
  10. PROPOFOL [Concomitant]
     Dosage: 200 MG, UNK
  11. CALCIUM [Concomitant]
  12. GABAPENTIN [Concomitant]
  13. MULTI-VITAMINS [Concomitant]
  14. HYDROMORPHONE HCL [Concomitant]
     Dosage: 1 MG, UNK
  15. FENTANYL [Suspect]
     Indication: ANAESTHESIA
     Dosage: 100 UG, UNK
  16. ONDANSETRON [Suspect]
     Dosage: 4 MG, UNK
  17. SENNA-MINT WAF [Concomitant]
  18. CLONAZEPAM [Concomitant]
  19. HYDROMORPHONE HCL [Concomitant]
     Dosage: 0.4 MG, UNK
  20. OMEPRAZOLE [Concomitant]
  21. LEVOTHYROXINE SODIUM [Concomitant]
  22. OXYCODONE HCL [Concomitant]
  23. FLUDROCORTISONE ACETATE [Concomitant]

REACTIONS (6)
  - CONFUSIONAL STATE [None]
  - AGITATION [None]
  - UNRESPONSIVE TO STIMULI [None]
  - HYPERREFLEXIA [None]
  - SEROTONIN SYNDROME [None]
  - APNOEA [None]
